FAERS Safety Report 5213146-5 (Version None)
Quarter: 2007Q1

REPORT INFORMATION
  Report Type: 
  Country: None (occurrence: None)
  Receive Date: 20070118
  Receipt Date: 20070118
  Transmission Date: 20070707
  Serious: Yes (Hospitalization)
  Sender: FDA-Public Use
  Company Number: None

PATIENT
  Sex: Male
  Weight: 108.4 kg

DRUGS (2)
  1. CYTARABINE [Suspect]
     Dosage: 1610  MG
  2. DAUNORUBICIN HCL [Suspect]
     Dosage: 309 MG

REACTIONS (14)
  - ATRIAL FIBRILLATION [None]
  - BACTERIA STOOL IDENTIFIED [None]
  - BODY TEMPERATURE INCREASED [None]
  - DIARRHOEA HAEMORRHAGIC [None]
  - HAEMODIALYSIS [None]
  - HYPERTENSION [None]
  - HYPOTENSION [None]
  - MEGACOLON [None]
  - MULTI-ORGAN FAILURE [None]
  - NEUTROPHIL COUNT DECREASED [None]
  - PLATELET COUNT DECREASED [None]
  - RENAL FAILURE [None]
  - RESUSCITATION [None]
  - WHITE BLOOD CELL COUNT [None]
